FAERS Safety Report 8620965-1 (Version None)
Quarter: 2012Q3

REPORT INFORMATION
  Report Type: 
  Country: None (occurrence: None)
  Receive Date: 20120824
  Receipt Date: 20120814
  Transmission Date: 20120928
  Serious: Yes (Hospitalization)
  Sender: FDA-Public Use
  Company Number: IE-ELI_LILLY_AND_COMPANY-IE201208004308

PATIENT
  Sex: Female

DRUGS (14)
  1. NEXIUM [Concomitant]
  2. SPIRIVA [Concomitant]
  3. PREDNISOLONE [Concomitant]
  4. XANACINE [Concomitant]
  5. FORTEO [Suspect]
     Indication: OSTEOPOROSIS
     Dosage: 20 UG, QD
     Route: 058
     Dates: start: 20120717
  6. VENTOLIN                                /SCH/ [Concomitant]
  7. MYCOSTATIN [Concomitant]
  8. OMACOR [Concomitant]
  9. EZETIMIBE [Concomitant]
  10. NASONEX [Concomitant]
  11. SINGULAIR [Concomitant]
  12. MOVIPREP [Concomitant]
  13. CALCIUM CARBONATE [Concomitant]
  14. COMBIVENT [Concomitant]

REACTIONS (1)
  - ASTHMA [None]
